FAERS Safety Report 12673374 (Version 3)
Quarter: 2019Q2

REPORT INFORMATION
  Report Type: Spontaneous
  Country: FR (occurrence: FR)
  Receive Date: 20160822
  Receipt Date: 20190402
  Transmission Date: 20190711
  Serious: Yes (Hospitalization)
  Sender: FDA-Public Use
  Company Number: FR-SA-2016SA149374

PATIENT
  Age: 40 Year
  Sex: Female

DRUGS (10)
  1. IBUPROFEN/PSEUDOEPHEDRINE HYDROCHLORIDE [Suspect]
     Active Substance: IBUPROFEN\PSEUDOEPHEDRINE HYDROCHLORIDE
     Indication: NASOPHARYNGITIS
     Dosage: UNK UNK, QD
     Route: 048
     Dates: start: 20160712, end: 20160716
  2. PIRILENE [Suspect]
     Active Substance: PYRAZINAMIDE
     Indication: TUBERCULOSIS
     Dosage: 2 G,QD
     Route: 048
     Dates: start: 20160625, end: 20160720
  3. ESOMEPRAZOLE MAGNESIUM. [Concomitant]
     Active Substance: ESOMEPRAZOLE MAGNESIUM
     Dosage: 20 MG,QD
  4. MAGNESIUM ALGINATE;SODIUM ALGINATE [Concomitant]
     Dosage: UNK
  5. ETHAMBUTOL [Suspect]
     Active Substance: ETHAMBUTOL HYDROCHLORIDE
     Indication: TUBERCULOSIS
     Dosage: 1.5 G,QD
     Route: 048
     Dates: start: 20160625
  6. CACIT D3 [Concomitant]
     Active Substance: CALCIUM\CHOLECALCIFEROL
     Dosage: UNK
  7. ISONIAZID. [Suspect]
     Active Substance: ISONIAZID
     Dosage: 300 MG,QD
     Route: 048
     Dates: start: 20160625, end: 20160720
  8. LEVOTHYROXINE. [Concomitant]
     Active Substance: LEVOTHYROXINE
     Dosage: 150 UG,QD
     Dates: start: 201605
  9. PARACETAMOL [Suspect]
     Active Substance: ACETAMINOPHEN
     Dosage: UNK UNK,QD
     Route: 048
     Dates: start: 20160712, end: 20160719
  10. RIFADINE [Suspect]
     Active Substance: RIFAMPIN
     Indication: TUBERCULOSIS
     Dosage: 600 MG,QD
     Route: 048
     Dates: start: 20160625

REACTIONS (5)
  - Gamma-glutamyltransferase increased [Recovered/Resolved]
  - Alanine aminotransferase increased [Recovered/Resolved]
  - Prothrombin time shortened [Recovered/Resolved]
  - Aspartate aminotransferase increased [Recovered/Resolved]
  - Hepatocellular injury [Recovered/Resolved]

NARRATIVE: CASE EVENT DATE: 20160720
